FAERS Safety Report 5580310-5 (Version None)
Quarter: 2007Q4

REPORT INFORMATION
  Report Type: 
  Country: None (occurrence: None)
  Receive Date: 20071130
  Receipt Date: 20070831
  Transmission Date: 20080405
  Serious: No
  Sender: FDA-Public Use
  Company Number: US200707005705

PATIENT
  Age: 66 Year
  Sex: Male
  Weight: 113.4 kg

DRUGS (9)
  1. BYETTA [Suspect]
     Indication: TYPE 2 DIABETES MELLITUS
     Dosage: 5 UG, 2/D, SUBCUTANEOUS ; 10 UG, 2/D, SUBCUTANEOUS
     Route: 058
     Dates: start: 20070616, end: 20070717
  2. BYETTA [Suspect]
     Indication: TYPE 2 DIABETES MELLITUS
     Dosage: 5 UG, 2/D, SUBCUTANEOUS ; 10 UG, 2/D, SUBCUTANEOUS
     Route: 058
     Dates: start: 20070718
  3. GLUCOPHAGE [Concomitant]
  4. AVANDIA [Concomitant]
  5. COZAAR [Concomitant]
  6. FLOMAX [Concomitant]
  7. PRAVACHOL (PRAVASTATIN HYDROCHLORIDE) [Concomitant]
  8. STRATTERA [Concomitant]
  9. AVODART (DUTATERIDE) [Concomitant]

REACTIONS (1)
  - LIBIDO DECREASED [None]
